FAERS Safety Report 14251458 (Version 2)
Quarter: 2018Q1

REPORT INFORMATION
  Report Type: Report from Study
  Country: DE (occurrence: DE)
  Receive Date: 20171205
  Receipt Date: 20180117
  Transmission Date: 20180508
  Serious: Yes (Other)
  Sender: FDA-Public Use
  Company Number: PHHO2017DE016203

PATIENT
  Age: 70 Year
  Sex: Female
  Weight: 74 kg

DRUGS (3)
  1. AMN107 [Suspect]
     Active Substance: NILOTINIB
     Indication: CHRONIC MYELOID LEUKAEMIA
     Dosage: 600 MG
     Route: 048
     Dates: start: 20160205, end: 20161216
  2. AMN107 [Suspect]
     Active Substance: NILOTINIB
     Dosage: 450 MG
     Route: 048
     Dates: start: 20161217, end: 20170728
  3. AMN107 [Suspect]
     Active Substance: NILOTINIB
     Dosage: 300 MG
     Route: 048
     Dates: start: 20170729, end: 20170927

REACTIONS (2)
  - Myelodysplastic syndrome [Not Recovered/Not Resolved]
  - Second primary malignancy [Not Recovered/Not Resolved]

NARRATIVE: CASE EVENT DATE: 201711
